FAERS Safety Report 7772924 (Version 6)
Quarter: 2013Q3

REPORT INFORMATION
  Report Type: Spontaneous
  Country: US (occurrence: US)
  Receive Date: 20110125
  Receipt Date: 20130920
  Transmission Date: 20140515
  Serious: Yes (Hospitalization, Other)
  Sender: FDA-Public Use
  Company Number: US-ROCHE-744005

PATIENT
  Age: 27 Year
  Sex: Female
  Weight: 76.2 kg

DRUGS (7)
  1. ACCUTANE [Suspect]
     Indication: ACNE
     Dosage: ENROLLED IN STUDY IPLEDGE
     Route: 048
  2. ACCUTANE [Suspect]
     Dosage: ON HOLD
     Route: 048
     Dates: start: 20081015, end: 20081120
  3. ACCUTANE [Suspect]
     Route: 048
     Dates: start: 20081123, end: 200812
  4. TYLENOL [Concomitant]
     Indication: PAIN
     Route: 065
  5. IMODIUM A-D [Concomitant]
  6. ORTHO TRI-CYCLEN [Concomitant]
     Indication: CONTRACEPTION
     Route: 048
  7. TRINESSA [Concomitant]
     Indication: CONTRACEPTION
     Route: 048

REACTIONS (8)
  - Crohn^s disease [Unknown]
  - Small intestinal obstruction [Unknown]
  - Intestinal perforation [Unknown]
  - Inflammatory bowel disease [Unknown]
  - Emotional distress [Not Recovered/Not Resolved]
  - Injury [Not Recovered/Not Resolved]
  - Leukocytosis [Recovered/Resolved]
  - Lymphocyte count decreased [Recovered/Resolved]
